FAERS Safety Report 22389813 (Version 1)
Quarter: 2023Q2

REPORT INFORMATION
  Report Type: Spontaneous
  Country: RS (occurrence: RS)
  Receive Date: 20230531
  Receipt Date: 20230531
  Transmission Date: 20230721
  Serious: Yes (Other)
  Sender: FDA-Public Use
  Company Number: RS-PFIZER INC-PV202300093515

PATIENT
  Sex: Male

DRUGS (4)
  1. AVIBACTAM SODIUM\CEFTAZIDIME [Suspect]
     Active Substance: AVIBACTAM SODIUM\CEFTAZIDIME
     Indication: Klebsiella infection
     Dosage: ACTUAL: 2.5 G IN SLOW INFUSION IN THE DURATION OF AT LEAST 2H/8H
     Route: 042
     Dates: start: 20220627
  2. FRAGMIN [Suspect]
     Active Substance: DALTEPARIN SODIUM
     Indication: Product used for unknown indication
     Dosage: 2500 IU
     Route: 058
     Dates: start: 20220706
  3. METHYLPREDNISOLONE SODIUM SUCCINATE [Concomitant]
     Active Substance: METHYLPREDNISOLONE SODIUM SUCCINATE
     Dosage: 40 MG, QD
  4. IMIPENEM [Concomitant]
     Active Substance: IMIPENEM
     Dosage: UNK

REACTIONS (6)
  - Blood pressure systolic increased [Unknown]
  - Decubitus ulcer [Unknown]
  - Hypokalaemia [Unknown]
  - Injection site haematoma [Unknown]
  - Candida infection [Unknown]
  - Blood sodium decreased [Unknown]

NARRATIVE: CASE EVENT DATE: 20220711
